FAERS Safety Report 9719445 (Version 2)
Quarter: 2013Q4

REPORT INFORMATION
  Report Type: Spontaneous
  Country: US (occurrence: US)
  Receive Date: 20131128
  Receipt Date: 20131203
  Transmission Date: 20140711
  Serious: Yes (Life-Threatening, Hospitalization, Other)
  Sender: FDA-Public Use
  Company Number: US-MERCK-1311USA010935

PATIENT
  Age: 71 Year
  Sex: Male

DRUGS (1)
  1. INVANZ [Suspect]
     Dosage: STRENGTH 1 GM, RENAL DOSE

REACTIONS (3)
  - Renal failure [Recovering/Resolving]
  - Blood creatinine increased [Recovered/Resolved]
  - Blood urea increased [Recovered/Resolved]
